FAERS Safety Report 17344563 (Version 1)
Quarter: 2020Q1

REPORT INFORMATION
  Report Type: Spontaneous
  Country: IT (occurrence: IT)
  Receive Date: 20200129
  Receipt Date: 20200129
  Transmission Date: 20200409
  Serious: Yes (Congenital Anomaly)
  Sender: FDA-Public Use
  Company Number: IT-MYLANLABS-2020M1010418

PATIENT
  Sex: Male
  Weight: 2.85 kg

DRUGS (1)
  1. MYCOPHENOLATE MOFETIL. [Suspect]
     Active Substance: MYCOPHENOLATE MOFETIL
     Indication: PRODUCT USED FOR UNKNOWN INDICATION
     Dosage: 500 MG, QD (MATERNAL DOSE)
     Route: 064

REACTIONS (2)
  - Choroidal coloboma [Unknown]
  - Foetal exposure during pregnancy [Recovered/Resolved]
